FAERS Safety Report 7219491-6 (Version None)
Quarter: 2011Q1

REPORT INFORMATION
  Report Type: 
  Country: None (occurrence: None)
  Receive Date: 20110111
  Receipt Date: 20101230
  Transmission Date: 20110831
  Serious: Yes (Other)
  Sender: FDA-Public Use
  Company Number: CA-JNJFOC-20090404305

PATIENT
  Sex: Female
  Weight: 46.6 kg

DRUGS (11)
  1. FOSAMAX [Concomitant]
  2. PREDNISONE [Concomitant]
  3. UNSPECIFIED NARCOTIC [Concomitant]
  4. IMMUNOSUPPRESSIVES [Concomitant]
  5. REMICADE [Suspect]
     Route: 042
  6. LEFLUNOMIDE [Concomitant]
  7. FOLATE [Concomitant]
  8. REMICADE [Suspect]
     Indication: RHEUMATOID ARTHRITIS
     Dosage: 33RD INFUSION
     Route: 042
  9. METHOTREXATE [Concomitant]
  10. VITAMIN TAB [Concomitant]
  11. THYROID SUPPLEMENTS [Concomitant]

REACTIONS (8)
  - ARTHRITIS BACTERIAL [None]
  - THERMAL BURN [None]
  - PASTEURELLA INFECTION [None]
  - IMPAIRED HEALING [None]
  - STAPHYLOCOCCAL INFECTION [None]
  - OSTEOMYELITIS [None]
  - ENTEROCOCCAL INFECTION [None]
  - UPPER RESPIRATORY TRACT INFECTION [None]
